FAERS Safety Report 9690825 (Version 1)
Quarter: 2013Q4

REPORT INFORMATION
  Report Type: Spontaneous
  Country: KR (occurrence: KR)
  Receive Date: 20131115
  Receipt Date: 20131115
  Transmission Date: 20140711
  Serious: Yes (Hospitalization, Other)
  Sender: FDA-Public Use
  Company Number: PHHY2013KR125820

PATIENT
  Age: 12 Year
  Sex: Female

DRUGS (2)
  1. METHYLPHENIDATE [Suspect]
     Indication: ATTENTION DEFICIT/HYPERACTIVITY DISORDER
  2. RISPERIDONE [Suspect]
     Indication: ATTENTION DEFICIT/HYPERACTIVITY DISORDER

REACTIONS (21)
  - Brain oedema [Recovering/Resolving]
  - Staring [Recovering/Resolving]
  - Ataxia [Recovering/Resolving]
  - Abnormal behaviour [Recovering/Resolving]
  - Mental disorder [Recovering/Resolving]
  - Hemiparesis [Recovering/Resolving]
  - Encephalitis [Unknown]
  - Cerebral atrophy [Unknown]
  - Agitation [Recovering/Resolving]
  - Pyrexia [Unknown]
  - Aggression [Recovering/Resolving]
  - Amino acid level increased [Unknown]
  - Ornithine transcarbamoylase deficiency [Unknown]
  - Lipids increased [Unknown]
  - Hyperammonaemia [Recovered/Resolved]
  - Electroencephalogram abnormal [Unknown]
  - Oroticaciduria [Unknown]
  - Hyperbilirubinaemia [Unknown]
  - Amino acid level decreased [Unknown]
  - Blood lactic acid increased [Unknown]
  - Drug ineffective [Recovering/Resolving]
